FAERS Safety Report 17455468 (Version 1)
Quarter: 2020Q1

REPORT INFORMATION
  Report Type: Spontaneous
  Country: KR (occurrence: KR)
  Receive Date: 20200225
  Receipt Date: 20200225
  Transmission Date: 20200409
  Serious: Yes (Other)
  Sender: FDA-Public Use
  Company Number: KR-LUPIN PHARMACEUTICALS INC.-2019-00373

PATIENT
  Age: 60 Year
  Sex: Male

DRUGS (1)
  1. VALSARTAN. [Suspect]
     Active Substance: VALSARTAN
     Indication: PRODUCT USED FOR UNKNOWN INDICATION
     Dosage: 80 MG, UNK
     Route: 065

REACTIONS (10)
  - Erythema [Recovered/Resolved]
  - Diarrhoea [Recovering/Resolving]
  - Pruritus [Recovered/Resolved]
  - Nausea [Recovered/Resolved]
  - Dyspnoea [Recovered/Resolved]
  - Swelling [Recovered/Resolved]
  - Angioedema [Recovered/Resolved]
  - Chest discomfort [Recovered/Resolved]
  - Swelling face [Recovered/Resolved]
  - Urticaria [Recovered/Resolved]
